FAERS Safety Report 17179474 (Version 2)
Quarter: 2019Q4

REPORT INFORMATION
  Report Type: Spontaneous
  Country: US (occurrence: US)
  Receive Date: 20191219
  Receipt Date: 20191219
  Transmission Date: 20200122
  Serious: No
  Sender: FDA-Public Use
  Company Number: US-FERRINGPH-2019FE06947

PATIENT
  Age: 42 Year
  Sex: Female
  Weight: 82 kg

DRUGS (1)
  1. MENOPUR [Suspect]
     Active Substance: FOLLITROPIN\LUTEINIZING HORMONE
     Indication: ASSISTED REPRODUCTIVE TECHNOLOGY
     Dosage: UNK
     Route: 065
     Dates: start: 20191007, end: 20191016

REACTIONS (2)
  - Drug ineffective [Not Recovered/Not Resolved]
  - Product deposit [Unknown]

NARRATIVE: CASE EVENT DATE: 201910
